FAERS Safety Report 19408658 (Version 2)
Quarter: 2021Q2

REPORT INFORMATION
  Report Type: Spontaneous
  Country: PL (occurrence: PL)
  Receive Date: 20210613
  Receipt Date: 20210629
  Transmission Date: 20210717
  Serious: Yes (Other)
  Sender: FDA-Public Use
  Company Number: PL-B.I. PHARMACEUTICALS,INC./RIDGEFIELD-2021-BI-108898

PATIENT
  Age: 65 Year
  Sex: Male
  Weight: 83 kg

DRUGS (1)
  1. OFEV [Suspect]
     Active Substance: NINTEDANIB
     Indication: IDIOPATHIC PULMONARY FIBROSIS
     Dosage: INCLUSION OF OFEV ?  5TH SEPTEMBER 2018 ? THERAPY WITH A REDUCED DOSE OF OFEV 2X100 MG
     Route: 048
     Dates: start: 20180905

REACTIONS (1)
  - Idiopathic pulmonary fibrosis [Unknown]

NARRATIVE: CASE EVENT DATE: 20210323
